FAERS Safety Report 8319516-0 (Version None)
Quarter: 2012Q2

REPORT INFORMATION
  Report Type: 
  Country: None (occurrence: None)
  Receive Date: 20120427
  Receipt Date: 20120419
  Transmission Date: 20120825
  Serious: Yes (Disabling)
  Sender: FDA-Public Use
  Company Number: FR-GENZYME-CERZ-1002435

PATIENT
  Sex: Male

DRUGS (3)
  1. DEPAKENE [Concomitant]
     Indication: CONVULSION
     Dosage: UNK UNK, UNK
     Route: 065
  2. LAMICTAL [Concomitant]
     Indication: CONVULSION
     Dosage: UNK UNK, UNK
     Route: 065
     Dates: start: 20111206
  3. CEREZYME [Suspect]
     Indication: GAUCHER'S DISEASE
     Dosage: 140 U/KG, Q2W
     Route: 042
     Dates: start: 19930101

REACTIONS (1)
  - CONVULSION [None]
